FAERS Safety Report 15943495 (Version 6)
Quarter: 2020Q4

REPORT INFORMATION
  Report Type: Report from Study
  Country: US (occurrence: US)
  Receive Date: 20190210
  Receipt Date: 20201101
  Transmission Date: 20210113
  Serious: Yes (Death, Life-Threatening, Hospitalization, Other)
  Sender: FDA-Public Use
  Company Number: PHEH2019US005572

PATIENT
  Age: 11 Year
  Sex: Male
  Weight: 52 kg

DRUGS (3)
  1. FLUDARABINE [Concomitant]
     Active Substance: FLUDARABINE PHOSPHATE
     Indication: CHEMOTHERAPY
     Dosage: UNK
     Route: 065
  2. KYMRIAH [Suspect]
     Active Substance: TISAGENLECLEUCEL
     Indication: ACUTE LYMPHOCYTIC LEUKAEMIA RECURRENT
     Dosage: 1.7 X10^6 POSITIVE VIABLE T CELLS/KG
     Route: 042
     Dates: start: 20181206
  3. CYCLOPHOSPHAMIDE. [Concomitant]
     Active Substance: CYCLOPHOSPHAMIDE
     Indication: CHEMOTHERAPY
     Dosage: UNK
     Route: 065

REACTIONS (22)
  - Hypoxia [Fatal]
  - Multiple organ dysfunction syndrome [Unknown]
  - Bacterial infection [Unknown]
  - Respiratory distress [Not Recovered/Not Resolved]
  - Haematocrit decreased [Unknown]
  - Haemoglobin decreased [Unknown]
  - Coagulopathy [Unknown]
  - Pulmonary haemorrhage [Unknown]
  - Facial paralysis [Unknown]
  - Cytokine release syndrome [Fatal]
  - Platelet count decreased [Unknown]
  - Septic shock [Unknown]
  - Treatment failure [Unknown]
  - Hypotension [Fatal]
  - Metabolic acidosis [Unknown]
  - Stenotrophomonas sepsis [Fatal]
  - Respiratory failure [Unknown]
  - Pyrexia [Fatal]
  - Tumour lysis syndrome [Unknown]
  - Pneumonia [Fatal]
  - White blood cell count decreased [Unknown]
  - Cytopenia [Unknown]

NARRATIVE: CASE EVENT DATE: 20181207
